FAERS Safety Report 17531308 (Version 1)
Quarter: 2020Q1

REPORT INFORMATION
  Report Type: Spontaneous
  Country: GB (occurrence: GB)
  Receive Date: 20200312
  Receipt Date: 20200312
  Transmission Date: 20200409
  Serious: Yes (Other)
  Sender: FDA-Public Use
  Company Number: GB-BAXTER-2020BAX004981

PATIENT
  Age: 52 Year
  Sex: Female

DRUGS (2)
  1. CYCLOPHOSPHAMIDE INJECTION 1G [Suspect]
     Active Substance: CYCLOPHOSPHAMIDE
     Indication: PRODUCT USED FOR UNKNOWN INDICATION
     Route: 040
  2. CYCLOPHOSPHAMIDE TABLETS 50 MG [Suspect]
     Active Substance: CYCLOPHOSPHAMIDE
     Indication: PRODUCT USED FOR UNKNOWN INDICATION
     Route: 048

REACTIONS (1)
  - Cytology abnormal [Recovered/Resolved]
